FAERS Safety Report 8511705-5 (Version None)
Quarter: 2012Q3

REPORT INFORMATION
  Report Type: 
  Country: None (occurrence: None)
  Receive Date: 20120716
  Receipt Date: 20120709
  Transmission Date: 20120928
  Serious: Yes (Hospitalization)
  Sender: FDA-Public Use
  Company Number: IE-B.I. PHARMACEUTICALS,INC./RIDGEFIELD-2012-UK-00645UK

PATIENT
  Age: 78 Year
  Sex: Male

DRUGS (15)
  1. CALCIUM CARBONATE [Concomitant]
     Indication: OSTEOPOROSIS
     Route: 048
  2. BUPRENORPHINE [Concomitant]
     Indication: ANALGESIC THERAPY
     Dosage: 20 MCG/H
     Route: 061
  3. FESOTERODINE [Concomitant]
     Indication: BENIGN PROSTATIC HYPERPLASIA
     Dosage: 4 MG
     Route: 048
  4. FLURAZEPAN [Concomitant]
     Indication: SLEEP DISORDER
     Dosage: 30 MG
     Route: 048
  5. ATORVASTATIN [Concomitant]
     Indication: HYPERCHOLESTEROLAEMIA
     Dosage: 10 MG
     Route: 048
  6. TAMSULOSIN HCL [Concomitant]
     Indication: BENIGN PROSTATIC HYPERPLASIA
     Dosage: 400 MG
     Route: 048
  7. PREGABALIN [Concomitant]
     Indication: NEURALGIA
     Dosage: 300 MG
     Route: 048
  8. ACETAMINOPHEN W/ CODEINE [Concomitant]
     Indication: ANALGESIC THERAPY
     Dosage: 4 UP TO 8 A DAY
     Route: 048
  9. TRAJENTA [Suspect]
     Indication: TYPE 2 DIABETES MELLITUS
     Dosage: 5 MG
     Route: 048
     Dates: start: 20120410
  10. ASPIRIN [Concomitant]
     Indication: ANTIPLATELET THERAPY
     Dosage: 75 MG
     Route: 048
  11. OMEPRAZOLE [Concomitant]
     Indication: DYSPEPSIA
     Dosage: 20 MG
     Route: 048
  12. RAMIPRIL [Concomitant]
     Indication: BLOOD PRESSURE
     Dosage: 10 MG
     Route: 048
  13. QUININE SULFATE [Concomitant]
     Indication: RESTLESS LEGS SYNDROME
     Dosage: 300 MG
     Route: 048
  14. MOVIPREP [Concomitant]
     Indication: CONSTIPATION
     Dosage: 1 ANZ
     Route: 048
  15. AMLODIPINE [Concomitant]
     Indication: BLOOD PRESSURE
     Dosage: 5 MG
     Route: 048

REACTIONS (2)
  - WEIGHT DECREASED [None]
  - NON-HODGKIN'S LYMPHOMA [None]
